FAERS Safety Report 10162963 (Version 2)
Quarter: 2014Q2

REPORT INFORMATION
  Report Type: Spontaneous
  Country: IT (occurrence: IT)
  Receive Date: 20140509
  Receipt Date: 20140605
  Transmission Date: 20141212
  Serious: Yes (Congenital Anomaly)
  Sender: FDA-Public Use
  Company Number: IT-LUNDBECK-DKLU1099853

PATIENT
  Sex: 0

DRUGS (2)
  1. CLOBAZAM [Suspect]
     Indication: MATERNAL EXPOSURE TIMING UNSPECIFIED
     Route: 064
  2. OXCARBAZEPINE [Suspect]
     Indication: MATERNAL EXPOSURE TIMING UNSPECIFIED
     Route: 064

REACTIONS (2)
  - Atrioventricular septal defect [Unknown]
  - Foetal exposure during pregnancy [Unknown]
